FAERS Safety Report 8236588-2 (Version None)
Quarter: 2012Q1

REPORT INFORMATION
  Report Type: 
  Country: None (occurrence: None)
  Receive Date: 20120326
  Receipt Date: 20120326
  Transmission Date: 20120608
  Serious: Yes (Life-Threatening)
  Sender: FDA-Public Use
  Company Number: None

PATIENT

DRUGS (1)
  1. INVEGA SUSTENNA [Suspect]
     Indication: SCHIZOPHRENIA

REACTIONS (6)
  - DIZZINESS [None]
  - BLOOD GLUCOSE INCREASED [None]
  - SYNCOPE [None]
  - WHITE BLOOD CELL COUNT DECREASED [None]
  - ERECTILE DYSFUNCTION [None]
  - THROMBOSIS [None]
